FAERS Safety Report 9378661 (Version 1)
Quarter: 2013Q3

REPORT INFORMATION
  Report Type: Spontaneous
  Country: BR (occurrence: BR)
  Receive Date: 20130702
  Receipt Date: 20130702
  Transmission Date: 20140515
  Serious: Yes (Other)
  Sender: FDA-Public Use
  Company Number: BR-ASTRAZENECA-2013SE49312

PATIENT
  Age: 57 Year
  Sex: Female
  Weight: 44 kg

DRUGS (6)
  1. NEXIUM [Suspect]
     Indication: GASTRITIS
     Route: 048
     Dates: start: 2011
  2. NEXIUM [Suspect]
     Indication: GASTROOESOPHAGEAL REFLUX DISEASE
     Route: 048
     Dates: start: 2011
  3. ATACAND HCT [Suspect]
     Indication: HYPERTENSION
     Dosage: 16/12.5 MG
     Route: 048
     Dates: start: 2010
  4. RIVOTRIL [Suspect]
     Dates: end: 201302
  5. OLCADIL [Concomitant]
     Dates: start: 201302
  6. EXODUS [Concomitant]
     Dates: start: 201302

REACTIONS (4)
  - Blood pressure diastolic increased [Recovered/Resolved]
  - Memory impairment [Recovered/Resolved]
  - Gastritis [Recovering/Resolving]
  - Gastrooesophageal reflux disease [Recovering/Resolving]
